FAERS Safety Report 6224795-X (Version None)
Quarter: 2009Q2

REPORT INFORMATION
  Report Type: 
  Country: None (occurrence: None)
  Receive Date: 20090612
  Receipt Date: 20090330
  Transmission Date: 20091009
  Serious: No
  Sender: FDA-Public Use
  Company Number: US-ABBOTT-09P-163-0565438-00

PATIENT
  Sex: Female
  Weight: 74.456 kg

DRUGS (6)
  1. HUMIRA [Suspect]
     Indication: RHEUMATOID ARTHRITIS
     Route: 058
     Dates: start: 20040101
  2. ADVAIR HFA [Concomitant]
     Indication: ASTHMA
     Route: 055
  3. VENTOLIN [Concomitant]
     Indication: ASTHMA
     Route: 055
  4. FEXOFENADINE [Concomitant]
     Indication: HYPERSENSITIVITY
  5. ASTELIN [Concomitant]
     Indication: HYPERSENSITIVITY
     Route: 045
  6. NASACORT AQ [Concomitant]
     Indication: HYPERSENSITIVITY
     Route: 045

REACTIONS (2)
  - INCORRECT DOSE ADMINISTERED [None]
  - WRONG TECHNIQUE IN DRUG USAGE PROCESS [None]
